FAERS Safety Report 6752079-X (Version None)
Quarter: 2010Q2

REPORT INFORMATION
  Report Type: 
  Country: None (occurrence: None)
  Receive Date: 20100602
  Receipt Date: 20100518
  Transmission Date: 20101027
  Serious: No
  Sender: FDA-Public Use
  Company Number: US-B.I. PHARMACEUTICALS,INC./RIDGEFIELD-2010-BP-05020BP

PATIENT
  Age: 78 Year
  Sex: Male

DRUGS (6)
  1. FLOMAX [Suspect]
     Indication: BENIGN PROSTATIC HYPERPLASIA
     Dosage: 0.4 MG
     Route: 048
     Dates: start: 20090601, end: 20100416
  2. FLOMAX [Suspect]
     Indication: PROSTATOMEGALY
  3. FINASTERIDE [Concomitant]
  4. DONEPEZIL HCL [Concomitant]
  5. OMEPRAZOLE [Concomitant]
  6. ASPIRIN [Concomitant]

REACTIONS (3)
  - DROOLING [None]
  - RHINORRHOEA [None]
  - VISION BLURRED [None]
